FAERS Safety Report 18934016 (Version 1)
Quarter: 2021Q1

REPORT INFORMATION
  Report Type: Spontaneous
  Country: None (occurrence: US)
  Receive Date: 20210224
  Receipt Date: 20210224
  Transmission Date: 20210420
  Serious: Yes (Other)
  Sender: FDA-Public Use
  Company Number: US-GLAXOSMITHKLINE-US2021GSK052314

PATIENT
  Sex: Male

DRUGS (6)
  1. RANITIDINE CAPSULE [Suspect]
     Active Substance: RANITIDINE
     Indication: DIVERTICULITIS
     Dosage: UNK UNK, QD
     Route: 065
     Dates: start: 201212, end: 201910
  2. RANITIDINE. [Suspect]
     Active Substance: RANITIDINE
     Indication: DIVERTICULITIS
     Dosage: UNK, QD
     Route: 065
     Dates: start: 201212, end: 201910
  3. ZANTAC [Suspect]
     Active Substance: RANITIDINE HYDROCHLORIDE
     Indication: DIVERTICULITIS
     Dosage: UNK UNK, QD
     Route: 065
     Dates: start: 201212, end: 201910
  4. ZANTAC [Suspect]
     Active Substance: RANITIDINE HYDROCHLORIDE
     Indication: DIVERTICULITIS
     Dosage: UNK UNK, QD
     Route: 065
     Dates: start: 201212, end: 201910
  5. RANITIDINE. [Suspect]
     Active Substance: RANITIDINE
     Indication: DIVERTICULITIS
     Dosage: UNK UNK, QD
     Route: 065
     Dates: start: 201212, end: 201910
  6. RANITIDINE. [Suspect]
     Active Substance: RANITIDINE
     Indication: DIVERTICULITIS
     Dosage: UNK, QD
     Route: 065
     Dates: start: 201212, end: 201910

REACTIONS (1)
  - Prostate cancer [Unknown]
